FAERS Safety Report 19053605 (Version 1)
Quarter: 2021Q1

REPORT INFORMATION
  Report Type: Spontaneous
  Country: FR (occurrence: FR)
  Receive Date: 20210325
  Receipt Date: 20210325
  Transmission Date: 20210420
  Serious: Yes (Hospitalization)
  Sender: FDA-Public Use
  Company Number: FR-CELLTRION INC.-2021FR003700

PATIENT

DRUGS (22)
  1. DOBUTAMINE [Concomitant]
     Active Substance: DOBUTAMINE HYDROCHLORIDE
  2. ANTITHYMOCYTE IMMUNOGLOBULIN (RABBIT) [Suspect]
     Active Substance: LAPINE T-LYMPHOCYTE IMMUNE GLOBULIN
     Dosage: 1.5 MG/KG DAILY (2 DAYS) AND 1 MG/KG DAILY (1 DAY)
     Route: 042
     Dates: start: 201811
  3. MYCOPHENOLATE MOFETIL. [Concomitant]
     Active Substance: MYCOPHENOLATE MOFETIL
     Dosage: 750 MG, EVERY 12 HOUR
     Route: 065
     Dates: start: 201912
  4. TACROLIMUS. [Suspect]
     Active Substance: TACROLIMUS
     Indication: PROPHYLAXIS AGAINST TRANSPLANT REJECTION
     Dosage: TARGET 8?12 NG/ML,  EVERY 12 HOU
     Route: 065
     Dates: start: 202005
  5. RITUXIMAB (UNKNOWN) [Suspect]
     Active Substance: RITUXIMAB
     Indication: EPSTEIN-BARR VIRUS ASSOCIATED LYMPHOMA
     Dosage: 375 MG/M2
     Route: 065
     Dates: start: 202001
  6. PREDNISONE. [Suspect]
     Active Substance: PREDNISONE
     Dosage: UNK
     Route: 065
     Dates: start: 202001
  7. PREDNISONE. [Suspect]
     Active Substance: PREDNISONE
     Dosage: UNK
     Route: 065
     Dates: start: 201811
  8. PREDNISONE. [Suspect]
     Active Substance: PREDNISONE
     Dosage: UNK
     Route: 065
     Dates: start: 202005
  9. TACROLIMUS. [Suspect]
     Active Substance: TACROLIMUS
     Indication: EPSTEIN-BARR VIRUS ASSOCIATED LYMPHOMA
     Dosage: TARGET 8?12 NG/ML,  EVERY 12 HOU
     Route: 065
     Dates: start: 202001
  10. METHYLPREDNISOLONE. [Suspect]
     Active Substance: METHYLPREDNISOLONE
     Indication: PROPHYLAXIS AGAINST TRANSPLANT REJECTION
     Dosage: 2 MG/KG DAILY POD 1 AND 1 MG/KG DAILY PODS 2?7
     Route: 042
     Dates: start: 201811
  11. TACROLIMUS. [Suspect]
     Active Substance: TACROLIMUS
     Dosage: TARGET 8?12 NG/ML,  EVERY 12 HOU
     Route: 065
     Dates: start: 201811
  12. MYCOPHENOLIC ACID. [Suspect]
     Active Substance: MYCOPHENOLIC ACID
     Indication: EPSTEIN-BARR VIRUS ASSOCIATED LYMPHOMA
     Dosage: UNK, EVERY 12 HOUR
     Route: 065
     Dates: start: 202003
  13. PREDNISONE. [Suspect]
     Active Substance: PREDNISONE
     Indication: PROPHYLAXIS AGAINST TRANSPLANT REJECTION
     Dosage: UNK
     Route: 065
     Dates: start: 202003
  14. ANTITHYMOCYTE IMMUNOGLOBULIN (RABBIT) [Suspect]
     Active Substance: LAPINE T-LYMPHOCYTE IMMUNE GLOBULIN
     Indication: PROPHYLAXIS AGAINST TRANSPLANT REJECTION
     Dosage: UNK
     Route: 042
     Dates: start: 202003
  15. TACROLIMUS. [Suspect]
     Active Substance: TACROLIMUS
     Dosage: TARGET 8?12 NG/ML,  EVERY 12 HOU
     Route: 065
     Dates: start: 202003
  16. MYCOPHENOLATE MOFETIL. [Concomitant]
     Active Substance: MYCOPHENOLATE MOFETIL
     Dosage: 500 MG, EVERY 8 HOUR
     Route: 065
     Dates: start: 201811
  17. METHYLPREDNISOLONE. [Suspect]
     Active Substance: METHYLPREDNISOLONE
     Dosage: 2 MG/KG DAILY POD 1 AND 1 MG/KG DAILY PODS 2?7
     Route: 042
     Dates: start: 202005
  18. METHYLPREDNISOLONE. [Suspect]
     Active Substance: METHYLPREDNISOLONE
     Dosage: 2 MG/KG DAILY POD 1 AND 1 MG/KG DAILY PODS 2?7
     Route: 042
     Dates: start: 202003
  19. MYCOPHENOLIC ACID. [Suspect]
     Active Substance: MYCOPHENOLIC ACID
     Indication: PROPHYLAXIS AGAINST TRANSPLANT REJECTION
     Dosage: UNK, EVERY 12 HOUR
     Route: 065
     Dates: start: 202001
  20. TACROLIMUS. [Suspect]
     Active Substance: TACROLIMUS
     Dosage: TARGET 8?12 NG/ML,  EVERY 12 HOU
     Route: 065
     Dates: start: 201912
  21. CYCLOSPORINE. [Concomitant]
     Active Substance: CYCLOSPORINE
     Dosage: TARGET 250?300 NG/ML
     Route: 042
  22. PREDNISONE. [Suspect]
     Active Substance: PREDNISONE
     Dosage: UNK
     Route: 065
     Dates: start: 201912

REACTIONS (2)
  - COVID-19 [Recovered/Resolved]
  - Off label use [Unknown]
